FAERS Safety Report 15101290 (Version 1)
Quarter: 2018Q3

REPORT INFORMATION
  Report Type: Other
  Country: DE (occurrence: DE)
  Receive Date: 20180703
  Receipt Date: 20180703
  Transmission Date: 20181010
  Serious: Yes (Other)
  Sender: FDA-Public Use
  Company Number: DE-DEXPHARM-20180440

PATIENT
  Age: 60 Year
  Sex: Male

DRUGS (8)
  1. QUETIAPINE. [Suspect]
     Active Substance: QUETIAPINE
  2. PROMETHAZINE [Concomitant]
     Active Substance: PROMETHAZINE\PROMETHAZINE HYDROCHLORIDE
     Indication: PLEUROTHOTONUS
     Route: 030
  3. PROMETHAZINE [Concomitant]
     Active Substance: PROMETHAZINE\PROMETHAZINE HYDROCHLORIDE
     Indication: PLEUROTHOTONUS
     Route: 048
  4. OLANZAPINE. [Suspect]
     Active Substance: OLANZAPINE
  5. CLONAZEPAM. [Concomitant]
     Active Substance: CLONAZEPAM
     Indication: PLEUROTHOTONUS
  6. DONEPEZIL. [Suspect]
     Active Substance: DONEPEZIL
  7. RISPERIDONE. [Suspect]
     Active Substance: RISPERIDONE
  8. TRAZODONE [Concomitant]
     Active Substance: TRAZODONE HYDROCHLORIDE

REACTIONS (2)
  - Extrapyramidal disorder [Unknown]
  - Pleurothotonus [Recovered/Resolved]
